FAERS Safety Report 16173987 (Version 1)
Quarter: 2019Q2

REPORT INFORMATION
  Report Type: Spontaneous
  Country: ES (occurrence: ES)
  Receive Date: 20190409
  Receipt Date: 20190409
  Transmission Date: 20190711
  Serious: Yes (Disabling)
  Sender: FDA-Public Use
  Company Number: ES-PROVELL PHARMACEUTICALS-2065539

PATIENT
  Age: 40 Year
  Sex: Female
  Weight: 52 kg

DRUGS (1)
  1. EUTHYROX [Suspect]
     Active Substance: LEVOTHYROXINE SODIUM
     Indication: AUTOIMMUNE HYPOTHYROIDISM
     Route: 048
     Dates: start: 20180426, end: 20190308

REACTIONS (7)
  - Amenorrhoea [Recovered/Resolved]
  - Dizziness postural [Recovered/Resolved]
  - Arthralgia [Recovered/Resolved]
  - Panic reaction [Recovered/Resolved]
  - Myopia [Recovered/Resolved]
  - Concomitant disease aggravated [Recovered/Resolved]
  - Depression [Recovered/Resolved]

NARRATIVE: CASE EVENT DATE: 2018
